FAERS Safety Report 9790209 (Version 1)
Quarter: 2013Q4

REPORT INFORMATION
  Report Type: Spontaneous
  Country: FR (occurrence: FR)
  Receive Date: 20131231
  Receipt Date: 20131231
  Transmission Date: 20140711
  Serious: Yes (Other)
  Sender: FDA-Public Use
  Company Number: FR-JNJFOC-20131216563

PATIENT
  Sex: 0

DRUGS (3)
  1. INFLIXIMAB, RECOMBINANT [Suspect]
     Indication: PSORIASIS
     Route: 042
  2. ETANERCEPT [Concomitant]
     Indication: PSORIASIS
     Route: 065
  3. ADALIMUMAB [Concomitant]
     Indication: PSORIASIS
     Route: 065

REACTIONS (3)
  - Lupus-like syndrome [Unknown]
  - Hypersensitivity [Unknown]
  - Drug ineffective [Unknown]
